FAERS Safety Report 20920407 (Version 1)
Quarter: 2022Q2

REPORT INFORMATION
  Report Type: Spontaneous
  Country: US (occurrence: None)
  Receive Date: 20220604
  Receipt Date: 20220604
  Transmission Date: 20220721
  Serious: Yes (Life-Threatening, Disabling, Other)
  Sender: FDA-Public Use
  Company Number: None

PATIENT
  Age: 66 Year
  Sex: Female
  Weight: 59.85 kg

DRUGS (2)
  1. SPIRONOLACTONE [Suspect]
     Active Substance: SPIRONOLACTONE
     Indication: Hyperaldosteronism
     Dosage: OTHER QUANTITY : 540 TABLET(S);?FREQUENCY : TWICE A DAY;?
     Dates: start: 20210428
  2. SPIRONOLACTONE [Suspect]
     Active Substance: SPIRONOLACTONE
     Indication: Malignant hypertension

REACTIONS (6)
  - Product substitution issue [None]
  - Manufacturing materials issue [None]
  - Cerebrovascular accident [None]
  - Blood pressure increased [None]
  - Adrenocortical insufficiency acute [None]
  - Drug ineffective [None]

NARRATIVE: CASE EVENT DATE: 20210428
